FAERS Safety Report 14697933 (Version 1)
Quarter: 2018Q1

REPORT INFORMATION
  Report Type: Spontaneous
  Country: US (occurrence: US)
  Receive Date: 20180330
  Receipt Date: 20180330
  Transmission Date: 20180509
  Serious: No
  Sender: FDA-Public Use
  Company Number: US-DRREDDYS-USA/USA/17/0093572

PATIENT
  Age: 73 Year
  Sex: Female
  Weight: 59.09 kg

DRUGS (5)
  1. TIZANIDINE. [Concomitant]
     Active Substance: TIZANIDINE
     Indication: MUSCLE SPASMS
     Route: 065
  2. SUMATRIPTAN INJECTION USP, 6 MG/0.5 ML [Suspect]
     Active Substance: SUMATRIPTAN
     Indication: MIGRAINE
     Route: 065
  3. MORPHINE [Concomitant]
     Active Substance: MORPHINE
     Indication: JOINT SWELLING
     Route: 065
  4. EFA PLUS [Concomitant]
     Indication: PRODUCT USED FOR UNKNOWN INDICATION
     Route: 065
  5. CORTISONE [Concomitant]
     Active Substance: CORTISONE\HYDROCORTISONE
     Indication: JOINT SWELLING
     Route: 065

REACTIONS (2)
  - Drug dose omission [Unknown]
  - Product physical issue [Unknown]
